FAERS Safety Report 21979212 (Version 1)
Quarter: 2023Q1

REPORT INFORMATION
  Report Type: Report from Study
  Country: US (occurrence: US)
  Receive Date: 20230210
  Receipt Date: 20230210
  Transmission Date: 20230418
  Serious: Yes (Death, Life-Threatening, Disabling, Other)
  Sender: FDA-Public Use
  Company Number: US-002147023-NVSC2023US031175

PATIENT
  Sex: Female
  Weight: 53.97 kg

DRUGS (1)
  1. ENTRESTO [Suspect]
     Active Substance: SACUBITRIL\VALSARTAN
     Indication: Cardiac failure congestive
     Dosage: 1 DOSAGE FORM, BID
     Route: 065
     Dates: start: 202206

REACTIONS (6)
  - Cardio-respiratory arrest [Fatal]
  - Fall [Unknown]
  - COVID-19 [Unknown]
  - Face injury [Unknown]
  - Back injury [Unknown]
  - Upper limb fracture [Unknown]
